FAERS Safety Report 8890112 (Version 1)
Quarter: 2012Q4

REPORT INFORMATION
  Report Type: Spontaneous
  Country: US (occurrence: None)
  Receive Date: 20121105
  Receipt Date: 20121105
  Transmission Date: 20130627
  Serious: Yes (Life-Threatening, Hospitalization, Disabling)
  Sender: FDA-Public Use
  Company Number: None

PATIENT
  Age: 28 Year
  Sex: Female
  Weight: 56.7 kg

DRUGS (13)
  1. GABAPENTIN [Suspect]
  2. ZIPRASIDONE HCL [Suspect]
  3. LAMICTAL [Concomitant]
  4. MIRENA [Concomitant]
  5. NALTREXONE [Concomitant]
  6. ALDACTONE [Concomitant]
  7. RISPERIDONE [Concomitant]
  8. ABILIFY [Concomitant]
  9. LAMOTRIGINE [Concomitant]
  10. LORAZEPAM [Concomitant]
  11. CITALOPRAM [Concomitant]
  12. TEMAZEPAM [Concomitant]
  13. SPIRONOLACTONE [Concomitant]

REACTIONS (2)
  - Syncope [None]
  - Grand mal convulsion [None]
